FAERS Safety Report 9799211 (Version 3)
Quarter: 2015Q3

REPORT INFORMATION
  Report Type: Spontaneous
  Country: US (occurrence: US)
  Receive Date: 20140106
  Receipt Date: 20150807
  Transmission Date: 20151125
  Serious: No
  Sender: FDA-Public Use
  Company Number: US-GILEAD-2010-0033988

PATIENT
  Age: 63 Year
  Sex: Female
  Weight: 98.88 kg

DRUGS (8)
  1. LETAIRIS [Suspect]
     Active Substance: AMBRISENTAN
     Indication: PULMONARY ARTERIAL HYPERTENSION
     Route: 048
     Dates: start: 20100716
  2. ATENOLOL. [Concomitant]
     Active Substance: ATENOLOL
  3. SIMVASTATIN. [Concomitant]
     Active Substance: SIMVASTATIN
  4. LEVOTHYROXINE. [Concomitant]
     Active Substance: LEVOTHYROXINE
  5. COZAAR [Concomitant]
     Active Substance: LOSARTAN POTASSIUM
  6. FLEXERIL                           /00428402 [Concomitant]
  7. ISOSORBIDE. [Concomitant]
     Active Substance: ISOSORBIDE
  8. DIOVAN [Concomitant]
     Active Substance: VALSARTAN

REACTIONS (1)
  - Oedema [Recovered/Resolved]

NARRATIVE: CASE EVENT DATE: 201007
